FAERS Safety Report 20782402 (Version 5)
Quarter: 2024Q2

REPORT INFORMATION
  Report Type: Report from Study
  Country: US (occurrence: US)
  Receive Date: 20220504
  Receipt Date: 20240508
  Transmission Date: 20240716
  Serious: Yes (Life-Threatening, Other)
  Sender: FDA-Public Use
  Company Number: US-KOREA IPSEN Pharma-2022-12037

PATIENT
  Age: 65 Year
  Sex: Female

DRUGS (1)
  1. SOMATULINE DEPOT [Suspect]
     Active Substance: LANREOTIDE ACETATE
     Indication: Carcinoid syndrome
     Dosage: SITE: LEFT BUTTOCK, 120/0.5MG MG EVERY 28 DAYS
     Route: 058
     Dates: start: 20211108

REACTIONS (15)
  - Illness [Unknown]
  - Swelling [Not Recovered/Not Resolved]
  - Dehydration [Not Recovered/Not Resolved]
  - Fatigue [Not Recovered/Not Resolved]
  - Abdominal pain [Not Recovered/Not Resolved]
  - Diarrhoea [Not Recovered/Not Resolved]
  - Vomiting [Not Recovered/Not Resolved]
  - Nausea [Not Recovered/Not Resolved]
  - Haematological malignancy [Unknown]
  - Gastric cancer [Unknown]
  - Pancreatic carcinoma [Unknown]
  - Asthenia [Unknown]
  - Viral sinusitis [Unknown]
  - Product administration error [Unknown]
  - Inappropriate schedule of product administration [Unknown]

NARRATIVE: CASE EVENT DATE: 20211108
